FAERS Safety Report 7516875-3 (Version None)
Quarter: 2011Q2

REPORT INFORMATION
  Report Type: 
  Country: None (occurrence: None)
  Receive Date: 20110601
  Receipt Date: 20110527
  Transmission Date: 20111010
  Serious: Yes (Hospitalization)
  Sender: FDA-Public Use
  Company Number: US-AMGEN-USASP2011027838

PATIENT
  Age: 49 Year
  Sex: Female

DRUGS (3)
  1. VINCRISTINE [Concomitant]
  2. IMMUNOGLOBULINS [Concomitant]
  3. NPLATE [Suspect]
     Indication: IDIOPATHIC THROMBOCYTOPENIC PURPURA
     Dosage: 1 A?G/KG, UNK
     Dates: start: 20090904

REACTIONS (1)
  - SURGERY [None]
